FAERS Safety Report 19310228 (Version 2)
Quarter: 2021Q2

REPORT INFORMATION
  Report Type: Spontaneous
  Country: US (occurrence: US)
  Receive Date: 20210526
  Receipt Date: 20210622
  Transmission Date: 20210717
  Serious: Yes (Hospitalization)
  Sender: FDA-Public Use
  Company Number: US-IGSA-BIG0014535

PATIENT
  Age: 4 Year
  Sex: Male
  Weight: 16.4 kg

DRUGS (5)
  1. CEFTRIAXONE. [Concomitant]
     Active Substance: CEFTRIAXONE
     Indication: INFECTION
  2. INFLIXIMAB [Concomitant]
     Active Substance: INFLIXIMAB
  3. GAMUNEX?C [Suspect]
     Active Substance: HUMAN IMMUNOGLOBULIN G
     Indication: KAWASAKI^S DISEASE
     Dosage: 65 GRAM, TOTAL
     Route: 042
     Dates: start: 20201023, end: 20201025
  4. TYLENOL [Concomitant]
     Active Substance: ACETAMINOPHEN
     Indication: PREMEDICATION
     Dosage: UNK
     Dates: start: 20201023
  5. BENADRYL [Concomitant]
     Active Substance: DIPHENHYDRAMINE HYDROCHLORIDE
     Indication: PREMEDICATION
     Dosage: UNK
     Dates: start: 20201023

REACTIONS (2)
  - Haemolytic anaemia [Unknown]
  - Haemolysis [Unknown]

NARRATIVE: CASE EVENT DATE: 20201025
